FAERS Safety Report 13226011 (Version 1)
Quarter: 2017Q1

REPORT INFORMATION
  Report Type: Spontaneous
  Country: US (occurrence: US)
  Receive Date: 20170211
  Receipt Date: 20170211
  Transmission Date: 20170428
  Serious: Yes (Other)
  Sender: FDA-Public Use
  Company Number: None

PATIENT
  Age: 70 Year
  Sex: Female
  Weight: 71.1 kg

DRUGS (9)
  1. FISH OIL [Concomitant]
     Active Substance: FISH OIL
  2. FOLATE [Concomitant]
     Active Substance: FOLATE SODIUM
  3. UBIQUINOL [Concomitant]
     Active Substance: UBIQUINOL
  4. LUTEIN/ZEAXANTHIN [Concomitant]
  5. SERTALINE [Concomitant]
     Active Substance: SERTRALINE HYDROCHLORIDE
  6. PRAVASTATIN SODIUM 40 MG TAB [Suspect]
     Active Substance: PRAVASTATIN SODIUM
     Indication: HYPERLIPIDAEMIA
     Dosage: QUANTITY:30 TABLET(S); AT BEDTIME?
     Route: 048
     Dates: start: 20170131, end: 20170208
  7. TRAZODONE [Concomitant]
     Active Substance: TRAZODONE HYDROCHLORIDE
  8. ATORVASTATIN [Suspect]
     Active Substance: ATORVASTATIN
     Indication: HYPERLIPIDAEMIA
     Dosage: QUANTITY:90 TABLET(S); AT BEDTIME?
     Route: 048
     Dates: start: 20150506, end: 20150510
  9. MULTIVITAMIN [Concomitant]
     Active Substance: VITAMINS

REACTIONS (7)
  - Disturbance in attention [None]
  - Paraesthesia [None]
  - Dyspnoea [None]
  - Fatigue [None]
  - Myalgia [None]
  - Arthralgia [None]
  - Insomnia [None]

NARRATIVE: CASE EVENT DATE: 20170208
